FAERS Safety Report 16809455 (Version 2)
Quarter: 2019Q3

REPORT INFORMATION
  Report Type: Spontaneous
  Country: ES (occurrence: ES)
  Receive Date: 20190916
  Receipt Date: 20190918
  Transmission Date: 20191005
  Serious: Yes (Death, Hospitalization, Other)
  Sender: FDA-Public Use
  Company Number: ES-SA-2019SA256292

PATIENT
  Age: 52 Year
  Sex: Male
  Weight: 85 kg

DRUGS (1)
  1. LEMTRADA [Suspect]
     Active Substance: ALEMTUZUMAB
     Indication: MULTIPLE SCLEROSIS
     Dosage: 12 MG, QD
     Route: 041
     Dates: start: 20190121, end: 20190125

REACTIONS (16)
  - Quadriplegia [Fatal]
  - Loss of consciousness [Unknown]
  - Disease recurrence [Fatal]
  - Dysstasia [Fatal]
  - Dysarthria [Fatal]
  - Nystagmus [Fatal]
  - Ataxia [Fatal]
  - Respiratory failure [Fatal]
  - Peripheral motor neuropathy [Unknown]
  - Asthenia [Fatal]
  - Demyelinating polyneuropathy [Unknown]
  - Acute polyneuropathy [Unknown]
  - Paraparesis [Fatal]
  - Coma [Unknown]
  - Peripheral sensory neuropathy [Unknown]
  - Central nervous system lesion [Unknown]

NARRATIVE: CASE EVENT DATE: 20190626
